FAERS Safety Report 13001675 (Version 1)
Quarter: 2016Q4

REPORT INFORMATION
  Report Type: Spontaneous
  Country: US (occurrence: US)
  Receive Date: 20161206
  Receipt Date: 20161206
  Transmission Date: 20170207
  Serious: No
  Sender: FDA-Public Use
  Company Number: US-MYLANLABS-2016M1041419

PATIENT
  Age: 56 Year
  Sex: Female

DRUGS (1)
  1. LIDOCAINE PATCH [Suspect]
     Active Substance: LIDOCAINE
     Indication: PAIN IN EXTREMITY
     Dosage: 1 DF, QD, 12 HRS ON, 12 HRS OFF
     Route: 003
     Dates: start: 201609, end: 201609

REACTIONS (3)
  - Product quality issue [Recovered/Resolved]
  - Drug ineffective for unapproved indication [Recovered/Resolved]
  - Product adhesion issue [Recovered/Resolved]

NARRATIVE: CASE EVENT DATE: 201609
